FAERS Safety Report 13068407 (Version 2)
Quarter: 2017Q3

REPORT INFORMATION
  Report Type: Spontaneous
  Country: CA (occurrence: CA)
  Receive Date: 20161228
  Receipt Date: 20170830
  Transmission Date: 20171127
  Serious: Yes (Other)
  Sender: FDA-Public Use
  Company Number: CA-AMGEN-CANSP2016182256

PATIENT
  Age: 81 Year
  Sex: Female
  Weight: 89.9 kg

DRUGS (1)
  1. PROLIA [Suspect]
     Active Substance: DENOSUMAB
     Indication: OSTEOPOROSIS
     Dosage: UNK
     Route: 058
     Dates: start: 20160928

REACTIONS (5)
  - Mobility decreased [Recovered/Resolved]
  - Myositis [Unknown]
  - Arthralgia [Recovered/Resolved]
  - Spinal fracture [Unknown]
  - Myalgia [Recovered/Resolved]
